FAERS Safety Report 17927446 (Version 2)
Quarter: 2020Q3

REPORT INFORMATION
  Report Type: Report from Study
  Country: BE (occurrence: NL)
  Receive Date: 20200622
  Receipt Date: 20200710
  Transmission Date: 20201103
  Serious: Yes (Hospitalization)
  Sender: FDA-Public Use
  Company Number: BE-EXELIXIS-XL18420030665

PATIENT
  Age: 47 Year
  Sex: Female
  Weight: 101.3 kg

DRUGS (4)
  1. XL184 [Suspect]
     Active Substance: CABOZANTINIB
     Indication: SARCOMA UTERUS
     Dosage: 40 MG, QD
     Route: 048
     Dates: start: 20200420, end: 20200615
  2. DOXORUBICIN [Concomitant]
     Active Substance: DOXORUBICIN
  3. PARACETAMOL [Concomitant]
     Active Substance: ACETAMINOPHEN
     Indication: PAIN
     Dosage: 1000 MG, PRN
     Route: 048
     Dates: start: 2019
  4. IFOSFAMIDE. [Concomitant]
     Active Substance: IFOSFAMIDE

REACTIONS (1)
  - Intracardiac thrombus [Not Recovered/Not Resolved]

NARRATIVE: CASE EVENT DATE: 20200612
